FAERS Safety Report 7468621-X (Version None)
Quarter: 2011Q2

REPORT INFORMATION
  Report Type: 
  Country: None (occurrence: None)
  Receive Date: 20110510
  Receipt Date: 20110503
  Transmission Date: 20111010
  Serious: Yes (Hospitalization, Other)
  Sender: FDA-Public Use
  Company Number: US-BRISTOL-MYERS SQUIBB COMPANY-15717416

PATIENT
  Age: 90 Year
  Sex: Female
  Weight: 42 kg

DRUGS (1)
  1. COUMADIN [Suspect]
     Dosage: THERAPY FROM:SEVERAL YEARS

REACTIONS (4)
  - PNEUMONIA [None]
  - PROTHROMBIN TIME RATIO INCREASED [None]
  - MYCOBACTERIUM AVIUM COMPLEX INFECTION [None]
  - CARDIAC FAILURE CONGESTIVE [None]
